FAERS Safety Report 7572058-2 (Version None)
Quarter: 2011Q2

REPORT INFORMATION
  Report Type: 
  Country: None (occurrence: None)
  Receive Date: 20110624
  Receipt Date: 20110620
  Transmission Date: 20111010
  Serious: Yes (Other)
  Sender: FDA-Public Use
  Company Number: CHPA2011US08225

PATIENT
  Sex: Male
  Weight: 145.13 kg

DRUGS (2)
  1. PHENYLEPHRINE HCL [Suspect]
     Indication: NASAL CONGESTION
     Dosage: UNK, QD
     Route: 045
  2. PHENYLEPHRINE HCL [Suspect]
     Dosage: UNK, UNK
     Route: 045

REACTIONS (8)
  - INCORRECT DRUG ADMINISTRATION DURATION [None]
  - HYPOTHYROIDISM [None]
  - OVERDOSE [None]
  - DRUG DEPENDENCE [None]
  - HEART RATE IRREGULAR [None]
  - BLOOD CHOLESTEROL INCREASED [None]
  - GLUCOSE TOLERANCE IMPAIRED [None]
  - HYPERTENSION [None]
